FAERS Safety Report 12656834 (Version 1)
Quarter: 2016Q3

REPORT INFORMATION
  Report Type: Spontaneous
  Country: US (occurrence: US)
  Receive Date: 20160816
  Receipt Date: 20160816
  Transmission Date: 20161109
  Serious: No
  Sender: FDA-Public Use
  Company Number: US-PERRIGO-16US014970

PATIENT
  Age: 9 Year
  Sex: Male
  Weight: 31.75 kg

DRUGS (3)
  1. LORATADINE. [Suspect]
     Active Substance: LORATADINE
     Indication: PRURITUS
  2. LORATADINE. [Suspect]
     Active Substance: LORATADINE
     Indication: RASH
  3. LORATADINE. [Suspect]
     Active Substance: LORATADINE
     Indication: SEASONAL ALLERGY
     Dosage: 10 MG, QD
     Route: 048
     Dates: start: 2014, end: 20160407

REACTIONS (2)
  - Off label use [Unknown]
  - Expired product administered [Unknown]

NARRATIVE: CASE EVENT DATE: 2014
